FAERS Safety Report 11108964 (Version 1)
Quarter: 2015Q2

REPORT INFORMATION
  Report Type: Report from Study
  Country: US (occurrence: US)
  Receive Date: 20150513
  Receipt Date: 20150513
  Transmission Date: 20150821
  Serious: Yes (Other)
  Sender: FDA-Public Use
  Company Number: US-BIOGENIDEC-2015BI060647

PATIENT
  Age: 68 Year
  Sex: Female

DRUGS (1)
  1. AVONEX [Suspect]
     Active Substance: INTERFERON BETA-1A
     Indication: MULTIPLE SCLEROSIS
     Route: 030
     Dates: start: 20100416, end: 2015

REACTIONS (12)
  - Drug administered at inappropriate site [Recovered/Resolved]
  - Seizure [Recovered/Resolved]
  - Depression [Recovered/Resolved]
  - Memory impairment [Not Recovered/Not Resolved]
  - Swelling [Not Recovered/Not Resolved]
  - Pyrexia [Recovered/Resolved]
  - Pain [Not Recovered/Not Resolved]
  - Headache [Recovered/Resolved]
  - Fall [Recovered/Resolved]
  - Upper limb fracture [Not Recovered/Not Resolved]
  - Wrist fracture [Not Recovered/Not Resolved]
  - Mood swings [Recovered/Resolved]

NARRATIVE: CASE EVENT DATE: 2015
